FAERS Safety Report 8120609-1 (Version None)
Quarter: 2012Q1

REPORT INFORMATION
  Report Type: 
  Country: None (occurrence: None)
  Receive Date: 20120207
  Receipt Date: 20120127
  Transmission Date: 20120608
  Serious: Yes (Hospitalization)
  Sender: FDA-Public Use
  Company Number: US-BAXTER-2012BH000446

PATIENT
  Age: 79 Year
  Sex: Male

DRUGS (4)
  1. DIANEAL [Suspect]
     Indication: PERITONEAL DIALYSIS
     Route: 033
     Dates: end: 20120101
  2. EXTRANEAL [Suspect]
     Indication: PERITONEAL DIALYSIS
     Route: 033
     Dates: end: 20120101
  3. EXTRANEAL [Suspect]
     Route: 033
     Dates: start: 20120101
  4. DIANEAL [Suspect]
     Route: 033
     Dates: start: 20120101

REACTIONS (3)
  - DEVICE RELATED INFECTION [None]
  - CHILLS [None]
  - VOMITING [None]
